FAERS Safety Report 10951472 (Version 3)
Quarter: 2015Q2

REPORT INFORMATION
  Report Type: Report from Study
  Country: RU (occurrence: RU)
  Receive Date: 20150324
  Receipt Date: 20150515
  Transmission Date: 20150821
  Serious: Yes (Life-Threatening, Hospitalization, Disabling, Other)
  Sender: FDA-Public Use
  Company Number: PHHY2015RU035100

PATIENT
  Age: 63 Year
  Sex: Female

DRUGS (3)
  1. ACLASTA [Suspect]
     Active Substance: ZOLEDRONIC ACID
     Dosage: UNK
     Route: 065
     Dates: start: 2014
  2. ACLASTA [Suspect]
     Active Substance: ZOLEDRONIC ACID
     Dosage: UNK
     Route: 065
     Dates: start: 20150322
  3. ACLASTA [Suspect]
     Active Substance: ZOLEDRONIC ACID
     Indication: OSTEOPOROSIS
     Dosage: UNK
     Route: 065
     Dates: start: 2013

REACTIONS (7)
  - Sternal fracture [Recovering/Resolving]
  - Heart injury [Recovering/Resolving]
  - Breast pain [Recovering/Resolving]
  - Alopecia [Recovered/Resolved]
  - Spinal fracture [Recovering/Resolving]
  - Femoral neck fracture [Recovering/Resolving]
  - Body temperature increased [Recovering/Resolving]

NARRATIVE: CASE EVENT DATE: 20150313
